FAERS Safety Report 21442336 (Version 1)
Quarter: 2022Q4

REPORT INFORMATION
  Report Type: Spontaneous
  Country: US (occurrence: None)
  Receive Date: 20221010
  Receipt Date: 20221010
  Transmission Date: 20230112
  Serious: Yes (Life-Threatening, Hospitalization, Other)
  Sender: FDA-Public Use
  Company Number: None

PATIENT
  Age: 79 Year
  Sex: Male
  Weight: 80.3 kg

DRUGS (6)
  1. WARFARIN [Suspect]
     Active Substance: WARFARIN
     Indication: Atrial fibrillation
     Dosage: FREQUENCY : DAILY;?
     Route: 048
     Dates: start: 20170314, end: 20220920
  2. AMLODIPINE [Concomitant]
     Active Substance: AMLODIPINE BESYLATE
  3. CHOLECALCIFEROL [Concomitant]
     Active Substance: CHOLECALCIFEROL
  4. DOXAZOSIN [Concomitant]
     Active Substance: DOXAZOSIN MESYLATE
  5. FLECAINIDE [Concomitant]
     Active Substance: FLECAINIDE
  6. FUROSEMIDE [Concomitant]
     Active Substance: FUROSEMIDE

REACTIONS (9)
  - Headache [None]
  - Nausea [None]
  - Vomiting [None]
  - Asthenia [None]
  - COVID-19 [None]
  - Syncope [None]
  - Subdural haematoma [None]
  - International normalised ratio increased [None]
  - Blood creatinine increased [None]

NARRATIVE: CASE EVENT DATE: 20220920
